FAERS Safety Report 9790948 (Version 1)
Quarter: 2013Q4

REPORT INFORMATION
  Report Type: Spontaneous
  Country: US (occurrence: US)
  Receive Date: 20131231
  Receipt Date: 20131231
  Transmission Date: 20140711
  Serious: Yes (Hospitalization)
  Sender: FDA-Public Use
  Company Number: US-ABBVIE-13P-163-1185106-00

PATIENT
  Age: 85 Year
  Sex: Female

DRUGS (1)
  1. EPILIM [Suspect]
     Indication: MIGRAINE
     Route: 048

REACTIONS (2)
  - Epilepsy [Unknown]
  - Somnolence [Unknown]
